FAERS Safety Report 11689630 (Version 1)
Quarter: 2015Q4

REPORT INFORMATION
  Report Type: Spontaneous
  Country: US (occurrence: None)
  Receive Date: 20151030
  Receipt Date: 20151030
  Transmission Date: 20160304
  Serious: Yes (Hospitalization)
  Sender: FDA-Public Use
  Company Number: None

PATIENT
  Age: 15 Year
  Sex: Female

DRUGS (1)
  1. SILDENAFIL 20MG GREENSTONE [Suspect]
     Active Substance: SILDENAFIL
     Route: 048
     Dates: start: 20150811

REACTIONS (4)
  - Fall [None]
  - Oedema [None]
  - Cardiac failure [None]
  - Fluid overload [None]

NARRATIVE: CASE EVENT DATE: 20151022
